FAERS Safety Report 25671524 (Version 1)
Quarter: 2025Q3

REPORT INFORMATION
  Report Type: Spontaneous
  Country: EU (occurrence: EU)
  Receive Date: 20250812
  Receipt Date: 20250812
  Transmission Date: 20251021
  Serious: Yes (Congenital Anomaly)
  Sender: TEVA
  Company Number: EU-EMB-M202407124-1

PATIENT
  Sex: Female
  Weight: 3.34 kg

DRUGS (4)
  1. METOPROLOL [Suspect]
     Active Substance: METOPROLOL
     Indication: Hypertension
     Route: 064
     Dates: start: 202303, end: 202312
  2. AMLODIPINE [Suspect]
     Active Substance: AMLODIPINE BESYLATE
     Indication: Hypertension
     Dosage: CONFLICTING REPORTS. UNCLEAR, IF DAILY DOSE 10 MG DIVIDED IN TWO SINGLE DOSES BY 5 MG OR IF DAILY...
     Route: 064
     Dates: start: 202303, end: 202312
  3. TOPIRAMATE [Suspect]
     Active Substance: TOPIRAMATE
     Indication: Moyamoya disease
     Dosage: INITIALLY 100 MG/D, WITH KNOWLEDGE OF PREGNANCY (GW 4) REDUCED WEEKLY BY 25 MG. FROM GW 8 NO APPL...
     Route: 064
     Dates: start: 202303, end: 202305
  4. ASPIRIN [Suspect]
     Active Substance: ASPIRIN
     Indication: Moyamoya disease
     Route: 064
     Dates: start: 202303, end: 202312

REACTIONS (5)
  - Congenital megaureter [Not Recovered/Not Resolved]
  - Congenital ureterocele [Not Recovered/Not Resolved]
  - Congenital hydronephrosis [Not Recovered/Not Resolved]
  - Foetal exposure during pregnancy [Unknown]
  - Kidney duplex [Not Recovered/Not Resolved]

NARRATIVE: CASE EVENT DATE: 20231201
